FAERS Safety Report 14385111 (Version 1)
Quarter: 2018Q1

REPORT INFORMATION
  Report Type: Other
  Country: US (occurrence: US)
  Receive Date: 20180115
  Receipt Date: 20180115
  Transmission Date: 20180509
  Serious: Yes (Death)
  Sender: FDA-Public Use
  Company Number: US-OSMOTICA_PHARMACEUTICAL_US_LLC-POI0573201800018

PATIENT
  Age: 51 Year
  Sex: Female

DRUGS (5)
  1. HYDROMORPHONE HYDROCHLORIDE EXTENDED-RELEASE [Suspect]
     Active Substance: HYDROMORPHONE HYDROCHLORIDE
     Dates: end: 2016
  2. CLONAZEPAM. [Suspect]
     Active Substance: CLONAZEPAM
     Dates: end: 2016
  3. HYDROXYZINE [Suspect]
     Active Substance: HYDROXYZINE HYDROCHLORIDE
     Dates: end: 2016
  4. METHADONE [Suspect]
     Active Substance: METHADONE HYDROCHLORIDE
     Dates: end: 2016
  5. GABAPENTIN. [Suspect]
     Active Substance: GABAPENTIN
     Dates: end: 2016

REACTIONS (3)
  - Respiratory arrest [Fatal]
  - Completed suicide [Fatal]
  - Cardiac arrest [Fatal]

NARRATIVE: CASE EVENT DATE: 2016
